FAERS Safety Report 9626978 (Version 2)
Quarter: 2013Q4

REPORT INFORMATION
  Report Type: Spontaneous
  Country: DE (occurrence: DE)
  Receive Date: 20131016
  Receipt Date: 20131016
  Transmission Date: 20140711
  Serious: Yes (Hospitalization, Other)
  Sender: FDA-Public Use
  Company Number: DE-UCBSA-066635

PATIENT
  Sex: Female
  Weight: 82.2 kg

DRUGS (6)
  1. KEPPRA [Suspect]
     Indication: PARTIAL SEIZURES
     Dosage: DAILY-500 (250 TWICE A DAY)-UNITS UNSPECIFIED
     Route: 048
     Dates: start: 20120706, end: 20120717
  2. URSOFALK [Concomitant]
     Indication: BILIARY CIRRHOSIS PRIMARY
     Route: 048
     Dates: start: 201204
  3. L-THYROXIN [Concomitant]
     Indication: AUTOIMMUNE THYROIDITIS
     Route: 048
     Dates: start: 2008
  4. PANTOPRAZOL [Concomitant]
     Indication: DYSPEPSIA
     Dosage: DAILY DOSE 40
     Route: 048
  5. RAMIPRIL [Concomitant]
     Indication: HYPERTENSION
     Dosage: 2.5 DAILY DOSE
     Route: 048
  6. TIOTROPIUM INHALATION [Concomitant]
     Indication: CHRONIC OBSTRUCTIVE PULMONARY DISEASE
     Dosage: UNKNOWN DOSE

REACTIONS (4)
  - Dissociative disorder [Unknown]
  - Speech disorder [Recovering/Resolving]
  - Suicide attempt [Unknown]
  - Hypoacusis [Unknown]
